FAERS Safety Report 25351285 (Version 1)
Quarter: 2025Q2

REPORT INFORMATION
  Report Type: Spontaneous
  Country: AT (occurrence: AT)
  Receive Date: 20250523
  Receipt Date: 20250523
  Transmission Date: 20250717
  Serious: Yes (Other)
  Sender: TAKEDA
  Company Number: AT-JNJFOC-20241211876

PATIENT
  Age: 51 Year
  Sex: Female

DRUGS (6)
  1. VELCADE [Suspect]
     Active Substance: BORTEZOMIB
     Indication: Primary amyloidosis
  2. NINLARO [Suspect]
     Active Substance: IXAZOMIB CITRATE
     Indication: Primary amyloidosis
  3. NINLARO [Suspect]
     Active Substance: IXAZOMIB CITRATE
  4. DARZALEX [Suspect]
     Active Substance: DARATUMUMAB
     Indication: Primary amyloidosis
  5. DARZALEX [Suspect]
     Active Substance: DARATUMUMAB
  6. DARZALEX [Suspect]
     Active Substance: DARATUMUMAB

REACTIONS (4)
  - Drug ineffective [Unknown]
  - Primary amyloidosis [Unknown]
  - Polyneuropathy [Unknown]
  - Off label use [Unknown]
